FAERS Safety Report 7094522-5 (Version None)
Quarter: 2010Q4

REPORT INFORMATION
  Report Type: 
  Country: None (occurrence: None)
  Receive Date: 20101110
  Receipt Date: 20101105
  Transmission Date: 20110411
  Serious: Yes (Other)
  Sender: FDA-Public Use
  Company Number: PHHO2010US16308

PATIENT
  Sex: Female
  Weight: 51.8 kg

DRUGS (17)
  1. FTY 720 FTY+CAP [Suspect]
     Indication: MULTIPLE SCLEROSIS
     Dosage: 0.5MG
     Route: 048
     Dates: start: 20080909, end: 20100507
  2. ZOVIRAX [Concomitant]
     Indication: HERPES ZOSTER
  3. CITRICAL [Concomitant]
     Dosage: UNK
     Dates: start: 20090130
  4. VITAMIN E [Concomitant]
     Dosage: UNK
     Dates: start: 20090130
  5. ASCORBIC ACID [Concomitant]
     Dosage: UNK
     Dates: start: 20090130
  6. VITAMIN B COMPLEX CAP [Concomitant]
     Dosage: UNK
     Dates: start: 20090130
  7. AMOXICILLIN [Concomitant]
     Indication: TOOTH EXTRACTION
     Dosage: UNK
     Dates: start: 20090130, end: 20090210
  8. DIOVAN [Concomitant]
     Indication: HYPERTENSION
     Dosage: UNK
     Dates: start: 20090814, end: 20100131
  9. STEROIDS NOS [Concomitant]
     Indication: ACANTHOMA
     Dosage: UNK
     Dates: start: 20090921, end: 20091015
  10. HYDROCHLOROTHIAZIDE [Concomitant]
     Indication: HYPERTENSION
     Dosage: UNK
     Dates: start: 20100201
  11. AMBIEN [Concomitant]
     Indication: STRESS
     Dosage: UNK
     Dates: start: 20100225
  12. PREDNISONE [Concomitant]
     Indication: BACK PAIN
     Dosage: UNK
     Dates: start: 20100505, end: 20100507
  13. DEXAMETHASONE [Concomitant]
     Indication: HERPES ZOSTER
     Dosage: UNK
     Dates: start: 20100507
  14. LYRICA [Concomitant]
     Indication: HERPES ZOSTER
     Dosage: UNK
     Dates: start: 20100520
  15. VICODIN [Concomitant]
     Indication: HERPES ZOSTER
     Dosage: UNK
     Dates: start: 20100507
  16. LEXAPRO [Concomitant]
     Indication: DEPRESSION
     Dosage: UNK
     Dates: start: 20100810
  17. XANAX [Concomitant]
     Indication: ANXIETY
     Dosage: UNK
     Dates: start: 20100810

REACTIONS (12)
  - CRYPTOCOCCOSIS [None]
  - ENDODONTIC PROCEDURE [None]
  - INFECTION [None]
  - LOWER RESPIRATORY TRACT INFECTION FUNGAL [None]
  - LUNG DISORDER [None]
  - LUNG HYPERINFLATION [None]
  - LUNG INFILTRATION [None]
  - PLEURAL FIBROSIS [None]
  - PNEUMOTHORAX [None]
  - POST PROCEDURAL COMPLICATION [None]
  - PULMONARY CAVITATION [None]
  - TOOTH ABSCESS [None]
